FAERS Safety Report 9652818 (Version 1)
Quarter: 2013Q4

REPORT INFORMATION
  Report Type: Spontaneous
  Country: CL (occurrence: CL)
  Receive Date: 20131029
  Receipt Date: 20131029
  Transmission Date: 20140711
  Serious: Yes (Other)
  Sender: FDA-Public Use
  Company Number: CL-GLAXOSMITHKLINE-A1047215A

PATIENT
  Sex: Female

DRUGS (5)
  1. BENLYSTA [Suspect]
     Indication: SYSTEMIC LUPUS ERYTHEMATOSUS
     Route: 042
     Dates: start: 20130505
  2. CLARITHROMYCIN [Concomitant]
  3. HEDERA HELIX [Concomitant]
  4. NAPROXEN [Concomitant]
  5. FLUOROMETHOLONE [Concomitant]

REACTIONS (11)
  - Eye infection [Not Recovered/Not Resolved]
  - Adenovirus infection [Not Recovered/Not Resolved]
  - Bronchitis [Unknown]
  - Pain [Unknown]
  - Cough [Unknown]
  - Headache [Unknown]
  - Ear pain [Unknown]
  - Pyrexia [Unknown]
  - Hypersensitivity [Unknown]
  - Ocular hyperaemia [Unknown]
  - Blepharitis [Unknown]
